FAERS Safety Report 11021405 (Version 3)
Quarter: 2015Q2

REPORT INFORMATION
  Report Type: Spontaneous
  Country: NL (occurrence: NL)
  Receive Date: 20150413
  Receipt Date: 20150416
  Transmission Date: 20150821
  Serious: Yes (Other)
  Sender: FDA-Public Use
  Company Number: NL-TEVA-552836ISR

PATIENT
  Age: 43 Year
  Sex: Female

DRUGS (3)
  1. OMEPRAZOL CAPSULE MGA 20MG [Concomitant]
     Dosage: 20 MILLIGRAM DAILY; ONE DAILY ONE PIECE
     Route: 048
     Dates: start: 20140321
  2. DICLOFENAC-NATRIUM [Interacting]
     Active Substance: DICLOFENAC SODIUM
     Indication: PSORIATIC ARTHROPATHY
     Dosage: 1 DOSAGE FORMS DAILY; ONE DAILY ONE PIECE
     Route: 048
     Dates: start: 20140328, end: 20141125
  3. METHOTREXAAT TABLET 2.5MG [Suspect]
     Active Substance: METHOTREXATE
     Indication: PSORIATIC ARTHROPATHY
     Dosage: 90 MILLIGRAM DAILY; ONCE DAILY 6 PIECES
     Route: 048
     Dates: start: 20141007, end: 20150109

REACTIONS (2)
  - Macular degeneration [Not Recovered/Not Resolved]
  - Drug interaction [Not Recovered/Not Resolved]

NARRATIVE: CASE EVENT DATE: 201411
